FAERS Safety Report 6641526-X (Version None)
Quarter: 2010Q1

REPORT INFORMATION
  Report Type: 
  Country: None (occurrence: None)
  Receive Date: 20100317
  Receipt Date: 20100317
  Transmission Date: 20100710
  Serious: Yes (Death)
  Sender: FDA-Public Use
  Company Number: None

PATIENT
  Sex: Male

DRUGS (2)
  1. LOVENOX [Suspect]
     Indication: INFARCTION
     Dosage: 90 MCG EVERY 12 HOURS SUBQ
     Route: 058
     Dates: start: 20100128, end: 20100304
  2. LOVENOX [Suspect]
     Indication: PULMONARY EMBOLISM
     Dosage: 90 MCG EVERY 12 HOURS SUBQ
     Route: 058
     Dates: start: 20100128, end: 20100304

REACTIONS (1)
  - DEATH [None]
